FAERS Safety Report 14432469 (Version 7)
Quarter: 2019Q3

REPORT INFORMATION
  Report Type: Spontaneous
  Country: US (occurrence: US)
  Receive Date: 20180124
  Receipt Date: 20190919
  Transmission Date: 20191004
  Serious: Yes (Hospitalization, Other)
  Sender: FDA-Public Use
  Company Number: US-PFIZER INC-2018030472

PATIENT
  Age: 84 Year
  Sex: Female

DRUGS (16)
  1. DIPHENOXYLATE/ATROPINE [Concomitant]
     Active Substance: ATROPINE\DIPHENOXYLATE
     Dosage: UNK (2.5-0.025 MG)
     Route: 048
     Dates: start: 20140715
  2. LEVOTHYROXINE. [Concomitant]
     Active Substance: LEVOTHYROXINE
     Dosage: 150 UG, UNK
     Route: 048
     Dates: start: 20140728
  3. LIORESAL [Concomitant]
     Active Substance: BACLOFEN
     Dosage: UNK (MEDTRONIC PUMP REVISION 40/500MCG/ML STARTING DOSE OF 139. 96MCG/DAY)
     Route: 037
     Dates: start: 20160927
  4. LOSARTAN AND HYDROCHLOROTHIAZIDE [Concomitant]
     Active Substance: HYDROCHLOROTHIAZIDE\LOSARTAN POTASSIUM
     Dosage: UNK (100-25 MG)
     Route: 048
     Dates: start: 20170812
  5. DILTIAZEM HYDROCHLORIDE. [Concomitant]
     Active Substance: DILTIAZEM HYDROCHLORIDE
     Dosage: 240 MG, UNK
     Route: 048
     Dates: start: 20170810
  6. NITROFURANTOIN MACROCRYSTALS [Concomitant]
     Active Substance: NITROFURANTOIN
     Dosage: 50 MG, UNK
     Route: 048
     Dates: start: 20170825
  7. FAMOTIDINE. [Concomitant]
     Active Substance: FAMOTIDINE
     Dosage: 20 MG, UNK
     Route: 048
     Dates: start: 20140703
  8. TAZTIA XT [Concomitant]
     Active Substance: DILTIAZEM HYDROCHLORIDE
     Dosage: 120 MG, UNK
     Route: 048
     Dates: start: 20140902
  9. DOXAZOSIN [DOXAZOSIN MESILATE] [Concomitant]
     Dosage: 8 MG, UNK
     Route: 048
     Dates: start: 20140714
  10. SOTALOL. [Concomitant]
     Active Substance: SOTALOL
     Dosage: 80 MG, UNK
     Route: 048
     Dates: start: 20140721
  11. LYRICA [Suspect]
     Active Substance: PREGABALIN
     Dosage: UNK
  12. OMEPRAZOLE. [Concomitant]
     Active Substance: OMEPRAZOLE
     Dosage: 40 MG, UNK
     Route: 048
     Dates: start: 20170825
  13. FUROSEMIDE. [Concomitant]
     Active Substance: FUROSEMIDE
     Dosage: 40 MG, UNK
     Route: 048
     Dates: start: 20140716
  14. LYRICA [Suspect]
     Active Substance: PREGABALIN
     Dosage: 75 MG, 3X/DAY
     Route: 048
     Dates: start: 20190624
  15. HYDROCODONE/ACETAMINOPHEN [Concomitant]
     Active Substance: ACETAMINOPHEN\HYDROCODONE
     Indication: PAIN
     Dosage: UNK UNK, AS NEEDED (5-325 MG) (TAKE 1/2 TABLET BY ORAL ROUTE EVERY 6 HOURS)
     Route: 048
     Dates: start: 20190618
  16. TRAZODONE [Concomitant]
     Active Substance: TRAZODONE HYDROCHLORIDE
     Dosage: 100 MG, UNK
     Route: 048
     Dates: start: 20140721

REACTIONS (5)
  - Pneumonia [Recovered/Resolved]
  - Influenza [Recovered/Resolved]
  - Fatigue [Unknown]
  - Product dispensing error [Unknown]
  - Dizziness [Unknown]
